FAERS Safety Report 5122858-3 (Version None)
Quarter: 2006Q4

REPORT INFORMATION
  Report Type: 
  Country: None (occurrence: None)
  Receive Date: 20061005
  Receipt Date: 20060922
  Transmission Date: 20070319
  Serious: Yes (Death, Hospitalization)
  Sender: FDA-Public Use
  Company Number: HQ4313923SEP2002

PATIENT
  Age: 57 Year
  Sex: Male
  Weight: 76 kg

DRUGS (22)
  1. MYLOTARG [Suspect]
     Indication: ACUTE MYELOID LEUKAEMIA
     Dosage: 17 MG 1X PER 1 DAY, INTRAVENOUS
     Route: 042
     Dates: start: 20020820, end: 20020820
  2. DIFLUCAN [Concomitant]
  3. VALTREX [Concomitant]
  4. ALLOPURINOL [Concomitant]
  5. AMBIEN [Concomitant]
  6. PREVACID [Concomitant]
  7. PHYTONADIONE [Concomitant]
  8. CELEBREX [Concomitant]
  9. SOLU-MEDROL [Concomitant]
  10. BENADRYL [Concomitant]
  11. SODIUM BICARBONATE IN PLASTIC CONTAINER [Concomitant]
  12. DILAUDID [Concomitant]
  13. PEPCID [Concomitant]
  14. DEMEROL [Concomitant]
  15. AMIKACIN SULFATE [Concomitant]
  16. PHENERGAN (PROMETHAZINE HYDROCHLORIDE) [Concomitant]
  17. MAGNESIUM (MAGNESIUM) [Concomitant]
  18. POTASSIUM CHLORIDE [Concomitant]
  19. LEVAQUIN [Concomitant]
  20. SENOKOT [Concomitant]
  21. MEROPENEM (MEROPENEM) [Concomitant]
  22. CEFEPIME [Concomitant]

REACTIONS (17)
  - BILE DUCT OBSTRUCTION [None]
  - CARDIAC FAILURE CONGESTIVE [None]
  - DIARRHOEA [None]
  - DISEASE PROGRESSION [None]
  - DYSURIA [None]
  - FEBRILE NEUTROPENIA [None]
  - GASTROINTESTINAL DISORDER [None]
  - INFUSION RELATED REACTION [None]
  - MALIGNANT NEOPLASM PROGRESSION [None]
  - MYALGIA [None]
  - OBSTRUCTION GASTRIC [None]
  - PANCREATITIS [None]
  - PULMONARY OEDEMA [None]
  - RESPIRATORY FAILURE [None]
  - SPLENIC VEIN THROMBOSIS [None]
  - THERAPY NON-RESPONDER [None]
  - WEIGHT INCREASED [None]
